FAERS Safety Report 7387353-X (Version None)
Quarter: 2011Q1

REPORT INFORMATION
  Report Type: 
  Country: None (occurrence: None)
  Receive Date: 20110331
  Receipt Date: 20110318
  Transmission Date: 20110831
  Serious: Yes (Hospitalization)
  Sender: FDA-Public Use
  Company Number: PHHY2011DE13680

PATIENT
  Age: 59 Year
  Sex: Male

DRUGS (14)
  1. ACETYLSALICYLIC ACID [Concomitant]
     Indication: ANTICOAGULANT THERAPY
  2. RAMIPRIL [Concomitant]
  3. PANTOZOL [Concomitant]
  4. LEFAX [Concomitant]
     Indication: CONSTIPATION
  5. BETA BLOCKING AGENTS [Concomitant]
  6. AFINITOR [Suspect]
     Indication: METASTATIC RENAL CELL CARCINOMA
     Dosage: 10 MG, DAILY
     Route: 048
     Dates: start: 20110103, end: 20110125
  7. PARACETAMOL [Concomitant]
     Indication: ANALGESIC THERAPY
  8. INSULIN [Concomitant]
     Indication: DIABETES MELLITUS
  9. SIMVASTATIN [Concomitant]
     Indication: HYPERLIPIDAEMIA
  10. LAXOBERAL ^BOEHRINGER INGELHEIM^ [Concomitant]
     Indication: CONSTIPATION
  11. CALCIUM CHANNEL BLOCKERS [Concomitant]
  12. LYRICA [Concomitant]
     Indication: ANALGESIC THERAPY
  13. LEVOTHYROXINE SODIUM [Concomitant]
     Indication: HYPOTHYROIDISM
  14. MOVIPREP [Concomitant]
     Indication: CONSTIPATION

REACTIONS (10)
  - PYREXIA [None]
  - VOMITING [None]
  - FATIGUE [None]
  - INTERSTITIAL LUNG DISEASE [None]
  - NAUSEA [None]
  - GENERAL PHYSICAL HEALTH DETERIORATION [None]
  - COUGH [None]
  - PNEUMONITIS [None]
  - PNEUMONIA PRIMARY ATYPICAL [None]
  - DYSPNOEA [None]
